FAERS Safety Report 20587873 (Version 2)
Quarter: 2022Q2

REPORT INFORMATION
  Report Type: Spontaneous
  Country: PT (occurrence: None)
  Receive Date: 20220314
  Receipt Date: 20220407
  Transmission Date: 20220721
  Serious: Yes (Death)
  Sender: FDA-Public Use
  Company Number: PT-ROCHE-3041447

PATIENT
  Age: 67 Year
  Sex: Male

DRUGS (1)
  1. TECENTRIQ [Suspect]
     Active Substance: ATEZOLIZUMAB
     Indication: Non-small cell lung cancer
     Route: 041
     Dates: start: 20210325, end: 20211203

REACTIONS (2)
  - Lung adenocarcinoma [Fatal]
  - Drug ineffective [Unknown]

NARRATIVE: CASE EVENT DATE: 20211202
